FAERS Safety Report 17597749 (Version 1)
Quarter: 2020Q1

REPORT INFORMATION
  Report Type: Spontaneous
  Country: None (occurrence: US)
  Receive Date: 20200330
  Receipt Date: 20200330
  Transmission Date: 20200409
  Serious: Yes (Other)
  Sender: FDA-Public Use
  Company Number: US-ORION CORPORATION ORION PHARMA-20_00008752

PATIENT
  Sex: Female

DRUGS (1)
  1. LEVODOPA-CARBIDOPA-ENTACAPONE [Suspect]
     Active Substance: CARBIDOPA\ENTACAPONE\LEVODOPA
     Indication: PARKINSON^S DISEASE
     Route: 065

REACTIONS (3)
  - Freezing phenomenon [Recovering/Resolving]
  - Intentional dose omission [Unknown]
  - On and off phenomenon [Unknown]
